FAERS Safety Report 5716121-7 (Version None)
Quarter: 2008Q2

REPORT INFORMATION
  Report Type: 
  Country: None (occurrence: None)
  Receive Date: 20080423
  Receipt Date: 20080423
  Transmission Date: 20081010
  Serious: No
  Sender: FDA-Public Use
  Company Number: None

PATIENT
  Age: 49 Year
  Sex: Male
  Weight: 63.5036 kg

DRUGS (1)
  1. JANUMET [Suspect]
     Indication: BLOOD GLUCOSE ABNORMAL
     Dosage: 1 TABLET TWICE PER DAY PO
     Route: 048
     Dates: start: 20070410, end: 20080407

REACTIONS (4)
  - ACTIVITIES OF DAILY LIVING IMPAIRED [None]
  - JOINT RANGE OF MOTION DECREASED [None]
  - MUSCULOSKELETAL PAIN [None]
  - PAIN [None]
